FAERS Safety Report 7213473-6 (Version None)
Quarter: 2011Q1

REPORT INFORMATION
  Report Type: 
  Country: None (occurrence: None)
  Receive Date: 20110106
  Receipt Date: 20101223
  Transmission Date: 20110831
  Serious: Yes (Other)
  Sender: FDA-Public Use
  Company Number: PHHY2010PT87803

PATIENT
  Age: 89 Year
  Sex: Male

DRUGS (1)
  1. CAPTOPRIL [Suspect]
     Indication: HYPERTENSION

REACTIONS (5)
  - PRURITUS [None]
  - DERMATITIS BULLOUS [None]
  - BLISTER [None]
  - LINEAR IGA DISEASE [None]
  - BURNING SENSATION [None]
